FAERS Safety Report 11940091 (Version 2)
Quarter: 2016Q1

REPORT INFORMATION
  Report Type: Spontaneous
  Country: IT (occurrence: IT)
  Receive Date: 20160122
  Receipt Date: 20160126
  Transmission Date: 20160526
  Serious: Yes (Hospitalization)
  Sender: FDA-Public Use
  Company Number: IT-009507513-1601ITA007592

PATIENT
  Age: 59 Year
  Sex: Male
  Weight: 51 kg

DRUGS (9)
  1. LYRICA [Concomitant]
     Active Substance: PREGABALIN
     Dosage: 150 MG, UNK
  2. FLAGYL [Concomitant]
     Active Substance: METRONIDAZOLE\METRONIDAZOLE HYDROCHLORIDE
     Dosage: 500 MG, UNK
  3. FOLINA (FOLIC ACID) [Concomitant]
     Active Substance: FOLIC ACID
  4. SODIUM BICARBONATE. [Concomitant]
     Active Substance: SODIUM BICARBONATE
     Dosage: 1 G, UNK
  5. ZOLOFT [Concomitant]
     Active Substance: SERTRALINE HYDROCHLORIDE
  6. CALCITROL [Concomitant]
     Active Substance: CALCITRIOL
     Dosage: 0.5 MG, UNK
  7. RENVELA [Concomitant]
     Active Substance: SEVELAMER CARBONATE
     Dosage: 3200 MG, UNK
  8. JANUVIA [Suspect]
     Active Substance: SITAGLIPTIN PHOSPHATE
     Indication: TYPE 2 DIABETES MELLITUS
     Dosage: 1 DOSE UNIT, DAILY (25 MG, QD)
     Route: 048
     Dates: start: 20150219, end: 20150313
  9. PANTORC [Concomitant]
     Active Substance: PANTOPRAZOLE SODIUM

REACTIONS (2)
  - Hypoglycaemia [Recovering/Resolving]
  - Fasting [Recovering/Resolving]

NARRATIVE: CASE EVENT DATE: 20150313
